FAERS Safety Report 18431932 (Version 2)
Quarter: 2020Q4

REPORT INFORMATION
  Report Type: Spontaneous
  Country: CO (occurrence: CO)
  Receive Date: 20201027
  Receipt Date: 20201203
  Transmission Date: 20210114
  Serious: Yes (Death, Hospitalization, Other)
  Sender: FDA-Public Use
  Company Number: CO-BAXTER-2020BAX021362

PATIENT
  Age: 70 Year
  Sex: Female

DRUGS (2)
  1. DIANEAL PD-2 WITH DEXTROSE [Suspect]
     Active Substance: CALCIUM CHLORIDE\DEXTROSE\MAGNESIUM CHLORIDE\SODIUM CHLORIDE\SODIUM LACTATE
     Indication: PERITONEAL DIALYSIS
  2. DIANEAL PD-2 WITH DEXTROSE [Suspect]
     Active Substance: CALCIUM CHLORIDE\DEXTROSE\MAGNESIUM CHLORIDE\SODIUM CHLORIDE\SODIUM LACTATE
     Indication: CARDIAC FAILURE CONGESTIVE
     Dosage: 1 BAG PER DAY
     Route: 033
     Dates: start: 2017, end: 20201018

REACTIONS (7)
  - Cardiac failure [Fatal]
  - General physical health deterioration [Not Recovered/Not Resolved]
  - Femur fracture [Unknown]
  - Hip fracture [Recovered/Resolved]
  - Fall [Recovered/Resolved]
  - Humerus fracture [Unknown]
  - Pulmonary oedema [Not Recovered/Not Resolved]

NARRATIVE: CASE EVENT DATE: 20200929
